FAERS Safety Report 6060354-X (Version None)
Quarter: 2009Q1

REPORT INFORMATION
  Report Type: 
  Country: None (occurrence: None)
  Receive Date: 20090129
  Receipt Date: 20090129
  Transmission Date: 20090719
  Serious: Yes (Life-Threatening)
  Sender: FDA-Public Use
  Company Number: None

PATIENT
  Age: 63 Year
  Sex: Female
  Weight: 75.5 kg

DRUGS (7)
  1. DAPTOMYCIN 500MG [Suspect]
     Indication: FUNGAEMIA
     Dosage: 500MG IV
     Route: 042
     Dates: start: 20081117, end: 20081117
  2. DIFLUCAN [Concomitant]
  3. ALBUTEROL [Concomitant]
  4. ZOSYN [Concomitant]
  5. FENTANYL-75 [Concomitant]
  6. VANCOMYCIN [Concomitant]
  7. CASPOFUNGIN [Concomitant]

REACTIONS (6)
  - BRONCHOSPASM [None]
  - DEPRESSED LEVEL OF CONSCIOUSNESS [None]
  - HYPOVENTILATION [None]
  - PYREXIA [None]
  - RASH [None]
  - RESPIRATORY FAILURE [None]
